FAERS Safety Report 12949941 (Version 1)
Quarter: 2016Q4

REPORT INFORMATION
  Report Type: Spontaneous
  Country: US (occurrence: US)
  Receive Date: 20161116
  Receipt Date: 20161116
  Transmission Date: 20170207
  Serious: No
  Sender: FDA-Public Use
  Company Number: None

PATIENT
  Age: 50 Year
  Sex: Female
  Weight: 63 kg

DRUGS (1)
  1. MORPHINE [Suspect]
     Active Substance: MORPHINE
     Dosage: ?          OTHER FREQUENCY:Q4HPRN SEVERE PAIN;?
     Route: 042
     Dates: start: 20161012, end: 20161012

REACTIONS (3)
  - Pruritus [None]
  - Urticaria [None]
  - Infusion site pruritus [None]

NARRATIVE: CASE EVENT DATE: 20161012
